FAERS Safety Report 17145810 (Version 1)
Quarter: 2019Q4

REPORT INFORMATION
  Report Type: Spontaneous
  Country: AR (occurrence: AR)
  Receive Date: 20191212
  Receipt Date: 20191212
  Transmission Date: 20200122
  Serious: Yes (Other)
  Sender: FDA-Public Use
  Company Number: AR-PFIZER INC-2019535082

PATIENT
  Age: 46 Month

DRUGS (3)
  1. TACROLIMUS. [Concomitant]
     Active Substance: TACROLIMUS
     Indication: IMMUNOSUPPRESSANT DRUG THERAPY
     Dosage: UNK
  2. ANIDULAFUNGIN [Suspect]
     Active Substance: ANIDULAFUNGIN
     Indication: PROPHYLAXIS
     Dosage: 3 MG/KG, UNSPECIFIED FREQUENCY
  3. ANIDULAFUNGIN [Suspect]
     Active Substance: ANIDULAFUNGIN
     Dosage: 1.5 MG/KG, 1X/DAY

REACTIONS (4)
  - Off label use [Unknown]
  - Fungal peritonitis [Unknown]
  - Product use in unapproved indication [Unknown]
  - Candida infection [Unknown]
